FAERS Safety Report 15932305 (Version 1)
Quarter: 2019Q1

REPORT INFORMATION
  Report Type: Spontaneous
  Country: US (occurrence: US)
  Receive Date: 20190117
  Receipt Date: 20190117
  Transmission Date: 20190417
  Serious: No
  Sender: FDA-Public Use
  Company Number: None

PATIENT
  Age: 71 Year
  Sex: Male
  Weight: 84 kg

DRUGS (3)
  1. DEXAMETHASONE (34521) [Suspect]
     Active Substance: DEXAMETHASONE
  2. VELCADE [Concomitant]
     Active Substance: BORTEZOMIB
  3. LENALIDOMIDE [Concomitant]
     Active Substance: LENALIDOMIDE

REACTIONS (4)
  - Tachycardia [None]
  - Pyrexia [None]
  - Animal scratch [None]
  - Oropharyngeal pain [None]

NARRATIVE: CASE EVENT DATE: 20181225
